FAERS Safety Report 21016776 (Version 5)
Quarter: 2023Q2

REPORT INFORMATION
  Report Type: Report from Study
  Country: AU (occurrence: AU)
  Receive Date: 20220628
  Receipt Date: 20230630
  Transmission Date: 20230721
  Serious: Yes (Hospitalization, Other)
  Sender: FDA-Public Use
  Company Number: AU-NOVARTISPH-NVSC2022AU146113

PATIENT
  Age: 53 Year
  Sex: Male

DRUGS (4)
  1. ENTRESTO [Suspect]
     Active Substance: SACUBITRIL\VALSARTAN
     Indication: Right ventricular dysfunction
     Dosage: 73/77 MG, BD (24/26 MG + 49/51 MG) AT NIGHT
     Route: 065
  2. ENTRESTO [Suspect]
     Active Substance: SACUBITRIL\VALSARTAN
     Dosage: 1 DOSAGE FORM (49/51 MG), IN THE MORNING
     Route: 065
  3. ENTRESTO [Suspect]
     Active Substance: SACUBITRIL\VALSARTAN
     Dosage: UNK, BID (49/51MG + 24/26MG)
     Route: 065
  4. ENTRESTO [Suspect]
     Active Substance: SACUBITRIL\VALSARTAN
     Dosage: UNK, 49/51 MG MORNING AND 49/51 MG+24/26 MG NIGHT
     Route: 065

REACTIONS (11)
  - Ventricular dysfunction [Unknown]
  - Abdominal distension [Unknown]
  - Weight increased [Unknown]
  - Hypervolaemia [Unknown]
  - Gastroenteritis viral [Recovered/Resolved]
  - Syncope [Recovered/Resolved]
  - Device malfunction [Recovering/Resolving]
  - Renal impairment [Unknown]
  - Acute kidney injury [Unknown]
  - Blood pressure systolic decreased [Unknown]
  - Product use in unapproved indication [Unknown]

NARRATIVE: CASE EVENT DATE: 20220610
